FAERS Safety Report 7306854-3 (Version None)
Quarter: 2011Q1

REPORT INFORMATION
  Report Type: 
  Country: None (occurrence: None)
  Receive Date: 20110223
  Receipt Date: 20110211
  Transmission Date: 20110831
  Serious: Yes (Hospitalization)
  Sender: FDA-Public Use
  Company Number: US-BIOGENIDEC-2010BI042827

PATIENT
  Age: 48 Year
  Sex: Male

DRUGS (1)
  1. TYSABRI [Suspect]
     Indication: MULTIPLE SCLEROSIS
     Route: 042
     Dates: start: 20100602

REACTIONS (6)
  - NECROTISING FASCIITIS [None]
  - LOCALISED INFECTION [None]
  - HEADACHE [None]
  - SOMNOLENCE [None]
  - ASTHENIA [None]
  - MULTIPLE SCLEROSIS [None]
